FAERS Safety Report 6590534-6 (Version None)
Quarter: 2010Q1

REPORT INFORMATION
  Report Type: 
  Country: None (occurrence: None)
  Receive Date: 20100219
  Receipt Date: 20100204
  Transmission Date: 20100710
  Serious: Yes (Hospitalization)
  Sender: FDA-Public Use
  Company Number: US-ROCHE-686023

PATIENT
  Age: 63 Year
  Sex: Female
  Weight: 53.5 kg

DRUGS (4)
  1. AVASTIN [Suspect]
     Dosage: ROUTE: REPORTED AS ^IVT^
     Route: 050
  2. AVASTIN [Suspect]
     Dosage: DURATION OF THERAPY WITH AVASTIN 3 YEARS
     Route: 050
  3. BONIVA [Suspect]
     Indication: OSTEOPOROSIS
     Route: 048
  4. CALCIUM/VITAMIN D [Concomitant]

REACTIONS (6)
  - BREAST FIBROMA [None]
  - BREAST PAIN [None]
  - HAEMATOMA [None]
  - INJECTION SITE PAIN [None]
  - OPERATIVE HAEMORRHAGE [None]
  - PROCEDURAL PAIN [None]
